FAERS Safety Report 5505009-2 (Version None)
Quarter: 2007Q4

REPORT INFORMATION
  Report Type: 
  Country: None (occurrence: None)
  Receive Date: 20071031
  Receipt Date: 20071031
  Transmission Date: 20080405
  Serious: Yes (Other)
  Sender: FDA-Public Use
  Company Number: None

PATIENT
  Age: 85 Year
  Sex: Male

DRUGS (1)
  1. DOCETAXEL [Suspect]
     Indication: PROSTATE CANCER
     Dosage: 150 MG ONCE IV
     Route: 042
     Dates: start: 20070711, end: 20070711

REACTIONS (4)
  - ARTHRALGIA [None]
  - BONE PAIN [None]
  - INFUSION RELATED REACTION [None]
  - METASTASES TO BONE [None]
